FAERS Safety Report 21856887 (Version 1)
Quarter: 2023Q1

REPORT INFORMATION
  Report Type: Report from Study
  Country: NL (occurrence: NL)
  Receive Date: 20230113
  Receipt Date: 20230113
  Transmission Date: 20230418
  Serious: Yes (Life-Threatening, Hospitalization)
  Sender: FDA-Public Use
  Company Number: NL-002147023-NVSC2023NL005602

PATIENT

DRUGS (2)
  1. LUTETIUM OXODOTREOTIDE LU-177 [Suspect]
     Active Substance: LUTETIUM OXODOTREOTIDE LU-177
     Indication: Neuroendocrine tumour
     Dosage: UNK
     Route: 013
     Dates: start: 20200903
  2. SOMATOSTATIN [Concomitant]
     Active Substance: SOMATOSTATIN
     Indication: Hypotension
     Dosage: UNK
     Route: 065

REACTIONS (2)
  - Carcinoid crisis [Recovered/Resolved]
  - Carcinoid crisis [Recovered/Resolved]

NARRATIVE: CASE EVENT DATE: 20200914
